FAERS Safety Report 12495866 (Version 3)
Quarter: 2017Q2

REPORT INFORMATION
  Report Type: Spontaneous
  Country: US (occurrence: US)
  Receive Date: 20160624
  Receipt Date: 20170623
  Transmission Date: 20170830
  Serious: No
  Sender: FDA-Public Use
  Company Number: US-BAUSCH-BL-2016-009849

PATIENT
  Sex: Male

DRUGS (3)
  1. JUBLIA [Suspect]
     Active Substance: EFINACONAZOLE
     Indication: FUNGAL INFECTION
     Dosage: 3-4 TIMES A WEEK
     Route: 061
     Dates: start: 201503
  2. JUBLIA [Suspect]
     Active Substance: EFINACONAZOLE
     Dosage: 2-3 TIMES A WEEK
     Route: 061
  3. LIQUID VITAMIN E [Concomitant]
     Indication: FUNGAL INFECTION
     Route: 061

REACTIONS (2)
  - Nail growth abnormal [Recovering/Resolving]
  - Drug effect incomplete [Unknown]
